FAERS Safety Report 5287600-4 (Version None)
Quarter: 2007Q1

REPORT INFORMATION
  Report Type: 
  Country: None (occurrence: None)
  Receive Date: 20070124
  Receipt Date: 20060801
  Transmission Date: 20070707
  Serious: Yes (Hospitalization)
  Sender: FDA-Public Use
  Company Number: WAES 0608USA00413

PATIENT
  Age: 74 Year
  Sex: Female

DRUGS (1)
  1. INVANZ [Suspect]
     Dosage: IV
     Route: 042
     Dates: start: 20060731, end: 20060731

REACTIONS (2)
  - NAUSEA [None]
  - VOMITING [None]
